FAERS Safety Report 9459178 (Version 1)
Quarter: 2013Q3

REPORT INFORMATION
  Report Type: Spontaneous
  Country: US (occurrence: US)
  Receive Date: 20130814
  Receipt Date: 20130814
  Transmission Date: 20140515
  Serious: Yes (Hospitalization)
  Sender: FDA-Public Use
  Company Number: US-009507513-1308USA005633

PATIENT
  Sex: Female

DRUGS (1)
  1. MIRALAX [Suspect]
     Indication: PRODUCT USED FOR UNKNOWN INDICATION
     Route: 048

REACTIONS (9)
  - Hospitalisation [Not Recovered/Not Resolved]
  - Blood sodium decreased [Unknown]
  - Neuropathy peripheral [Unknown]
  - Fall [Unknown]
  - Walking aid user [Not Recovered/Not Resolved]
  - Wheelchair user [Not Recovered/Not Resolved]
  - Constipation [Not Recovered/Not Resolved]
  - Faeces hard [Not Recovered/Not Resolved]
  - Drug ineffective [Not Recovered/Not Resolved]
